FAERS Safety Report 7394220-4 (Version None)
Quarter: 2011Q2

REPORT INFORMATION
  Report Type: 
  Country: None (occurrence: None)
  Receive Date: 20110405
  Receipt Date: 20110126
  Transmission Date: 20111010
  Serious: Yes (Hospitalization)
  Sender: FDA-Public Use
  Company Number: DK-TYCO HEALTHCARE/MALLINCKRODT-T201100683

PATIENT
  Sex: Female
  Weight: 75 kg

DRUGS (4)
  1. OPTIRAY 350 [Suspect]
     Indication: COMPUTERISED TOMOGRAM
     Dosage: UNK, SINGLE
     Route: 042
     Dates: start: 20110120, end: 20110120
  2. CORODIL                            /00574901/ [Concomitant]
     Dosage: 20 MG, QD
     Route: 048
  3. SIMVASTATIN [Concomitant]
     Dosage: 40 MG, QD
     Route: 048
  4. SELO-ZOK [Concomitant]
     Dosage: 50 MG, QD
     Route: 048

REACTIONS (9)
  - HYPERSENSITIVITY [None]
  - DIZZINESS [None]
  - VOMITING [None]
  - RESPIRATION ABNORMAL [None]
  - BLOOD PRESSURE DECREASED [None]
  - PALLOR [None]
  - NAUSEA [None]
  - MALAISE [None]
  - DIARRHOEA [None]
